FAERS Safety Report 14810922 (Version 2)
Quarter: 2018Q3

REPORT INFORMATION
  Report Type: Report from Study
  Country: US (occurrence: US)
  Receive Date: 20180425
  Receipt Date: 20180719
  Transmission Date: 20181010
  Serious: No
  Sender: FDA-Public Use
  Company Number: US-AMGEN-USASL2018035596

PATIENT
  Age: 78 Year
  Sex: Female

DRUGS (1)
  1. REPATHA [Suspect]
     Active Substance: EVOLOCUMAB
     Indication: HYPERCHOLESTEROLAEMIA
     Dosage: 140 MG, Q2WK
     Route: 065

REACTIONS (7)
  - Bladder pain [Unknown]
  - Fall [Unknown]
  - Muscle strain [Unknown]
  - Headache [Not Recovered/Not Resolved]
  - Joint injury [Unknown]
  - Poor peripheral circulation [Unknown]
  - Limb injury [Unknown]

NARRATIVE: CASE EVENT DATE: 201709
